FAERS Safety Report 13083163 (Version 2)
Quarter: 2017Q1

REPORT INFORMATION
  Report Type: Report from Study
  Country: US (occurrence: US)
  Receive Date: 20170104
  Receipt Date: 20170106
  Transmission Date: 20170428
  Serious: Yes (Life-Threatening, Other)
  Sender: FDA-Public Use
  Company Number: US-ROCHE-1874273

PATIENT
  Age: 76 Year
  Sex: Male

DRUGS (6)
  1. INFLUENZA VACCINATION [Concomitant]
     Active Substance: INFLUENZA VIRUS VACCINE
     Route: 065
     Dates: start: 201211
  2. CETRIZINE [Concomitant]
     Active Substance: CETIRIZINE HYDROCHLORIDE
     Dosage: 1 TAB DAILY
     Route: 065
     Dates: start: 201201
  3. MUCINEX [Concomitant]
     Active Substance: GUAIFENESIN
     Dosage: 1 TAB
     Route: 048
     Dates: start: 20130615
  4. ESBRIET [Suspect]
     Active Substance: PIRFENIDONE
     Indication: IDIOPATHIC PULMONARY FIBROSIS
     Dosage: 3 CAPSULES BY MOUTH 3 TIMES A DAY WITH FOOD.
     Route: 048
     Dates: start: 201406
  5. PRAVASTATIN. [Concomitant]
     Active Substance: PRAVASTATIN
     Dosage: 1 TAB DAILY
     Route: 065
     Dates: start: 201101
  6. ASPIRIN. [Concomitant]
     Active Substance: ASPIRIN
     Dosage: 1 TAB
     Route: 065
     Dates: start: 201001

REACTIONS (2)
  - Cerebrovascular accident [Unknown]
  - Cerebrovascular accident [Recovered/Resolved with Sequelae]

NARRATIVE: CASE EVENT DATE: 20150106
